FAERS Safety Report 4569612-9 (Version None)
Quarter: 2005Q1

REPORT INFORMATION
  Report Type: 
  Country: None (occurrence: None)
  Receive Date: 20050203
  Receipt Date: 20040121
  Transmission Date: 20050727
  Serious: Yes (Hospitalization)
  Sender: FDA-Public Use
  Company Number: ES-ABBOTT-04P-144-0247890-00

PATIENT
  Sex: Female
  Weight: 80 kg

DRUGS (7)
  1. HUMIRA [Suspect]
     Indication: RHEUMATOID ARTHRITIS
     Route: 058
     Dates: start: 20030707, end: 20031124
  2. PREDNISONE [Concomitant]
     Indication: RHEUMATOID ARTHRITIS
     Route: 048
     Dates: start: 20010201
  3. DOLQUINE [Concomitant]
     Indication: RHEUMATOID ARTHRITIS
     Route: 048
     Dates: start: 20020813
  4. RISEDRONATE SODIUM [Concomitant]
     Indication: OSTEOPOROSIS PROPHYLAXIS
     Route: 048
     Dates: start: 20020508
  5. CALCIUM SANDOZ FORTE D [Concomitant]
     Indication: OSTEOPOROSIS PROPHYLAXIS
     Dosage: 800 UNITS OF VITAMIN D 1000 MG CALCIUM
     Route: 048
  6. CLARITHROMYCIN [Concomitant]
     Indication: TUBERCULOSIS PROPHYLAXIS
     Route: 048
     Dates: start: 20031226, end: 20040101
  7. METOCLOPRAMIDE [Concomitant]
     Indication: NAUSEA
     Route: 048
     Dates: start: 20031229, end: 20040101

REACTIONS (10)
  - BLOOD CULTURE POSITIVE [None]
  - CONVULSION [None]
  - CULTURE URINE POSITIVE [None]
  - ENCEPHALITIS [None]
  - ENCEPHALITIS HERPES [None]
  - ENTEROCOCCAL INFECTION [None]
  - HEPATOTOXICITY [None]
  - HERPES SIMPLEX [None]
  - LYMPHOCYTOSIS [None]
  - PROTEUS INFECTION [None]
